FAERS Safety Report 12722918 (Version 1)
Quarter: 2016Q3

REPORT INFORMATION
  Report Type: Other
  Country: GB (occurrence: FR)
  Receive Date: 20160908
  Receipt Date: 20160908
  Transmission Date: 20161109
  Serious: Yes (Hospitalization, Other)
  Sender: FDA-Public Use
  Company Number: FR-CLARIS PHARMASERVICES-1057152

PATIENT
  Age: 17 Year
  Sex: Male

DRUGS (1)
  1. NOREPINEPHRINE BITARTRATE. [Suspect]
     Active Substance: NOREPINEPHRINE BITARTRATE
     Indication: MEDICATION ERROR
     Route: 040

REACTIONS (2)
  - Stress cardiomyopathy [Recovering/Resolving]
  - Medication error [Recovering/Resolving]
